FAERS Safety Report 24754942 (Version 1)
Quarter: 2024Q4

REPORT INFORMATION
  Report Type: Spontaneous
  Country: US (occurrence: US)
  Receive Date: 20241219
  Receipt Date: 20241219
  Transmission Date: 20250115
  Serious: Yes (Other)
  Sender: PFIZER
  Company Number: US-PFIZER INC-202400324875

PATIENT
  Age: 4 Year
  Sex: Male

DRUGS (4)
  1. GENOTROPIN [Suspect]
     Active Substance: SOMATROPIN
     Indication: Growth hormone deficiency
     Dosage: 0.4 MG, ALTERNATE DAY
     Route: 058
     Dates: start: 2024
  2. GENOTROPIN [Suspect]
     Active Substance: SOMATROPIN
     Dosage: 0.6 MG, ALTERNATE DAY
     Route: 058
     Dates: start: 2024
  3. GENOTROPIN [Suspect]
     Active Substance: SOMATROPIN
     Dosage: 0.8 MG
  4. VITAMINS [Concomitant]
     Active Substance: VITAMINS
     Dosage: 1 DF, 1X/DAY

REACTIONS (6)
  - Blood iron decreased [Unknown]
  - Drug dose omission by device [Unknown]
  - Needle issue [Unknown]
  - Poor quality device used [Unknown]
  - Lack of injection site rotation [Unknown]
  - Injection site pain [Unknown]

NARRATIVE: CASE EVENT DATE: 20241201
